FAERS Safety Report 9441603 (Version 1)
Quarter: 2013Q3

REPORT INFORMATION
  Report Type: Spontaneous
  Country: US (occurrence: US)
  Receive Date: 20130806
  Receipt Date: 20130806
  Transmission Date: 20140515
  Serious: Yes (Other)
  Sender: FDA-Public Use
  Company Number: US-AMGEN-USASP2013053564

PATIENT
  Age: 28 Year
  Sex: Female
  Weight: 65.76 kg

DRUGS (12)
  1. ENBREL [Suspect]
     Indication: PRODUCT USED FOR UNKNOWN INDICATION
     Dosage: 25 MG, 2 TIMES/WK
     Route: 065
     Dates: start: 2010, end: 2011
  2. HUMIRA [Concomitant]
     Dosage: 40 MG/0.8
  3. LEVOTHYROXIN [Concomitant]
     Dosage: 88 MUG, UNK
  4. MOBIC [Concomitant]
     Dosage: 7.5 MG, UNK
  5. NIACIN [Concomitant]
     Dosage: 125 MG, ER
  6. CALCIUM [Concomitant]
     Dosage: 500 UNK, UNK
  7. MULTIVITAMINS, PLAIN [Concomitant]
     Dosage: UNK
  8. ACETAMINOPHEN [Concomitant]
     Dosage: 650 MG, UNK
  9. FERROUS SULFATE [Concomitant]
     Dosage: UNK
  10. IRON [Concomitant]
     Dosage: UNK
  11. B6 [Concomitant]
     Dosage: UNK
  12. FOLIC ACID [Concomitant]
     Dosage: 20 MG, UNK

REACTIONS (4)
  - Drug hypersensitivity [Recovered/Resolved]
  - Dermatitis allergic [Recovered/Resolved]
  - Pyrexia [Recovered/Resolved]
  - Erythema [Recovered/Resolved]
